FAERS Safety Report 22366333 (Version 1)
Quarter: 2023Q2

REPORT INFORMATION
  Report Type: Spontaneous
  Country: US (occurrence: US)
  Receive Date: 20230525
  Receipt Date: 20230525
  Transmission Date: 20230721
  Serious: Yes (Death, Hospitalization, Other)
  Sender: FDA-Public Use
  Company Number: US-SUN PHARMACEUTICAL INDUSTRIES LTD-2023R1-386772

PATIENT
  Age: 71 Year
  Sex: Male

DRUGS (1)
  1. ATORVASTATIN [Suspect]
     Active Substance: ATORVASTATIN
     Indication: Product used for unknown indication
     Dosage: UNK (80 MG)
     Route: 065

REACTIONS (6)
  - Immune-mediated myositis [Fatal]
  - Acute respiratory failure [Fatal]
  - Pulmonary embolism [Fatal]
  - Gastrointestinal haemorrhage [Fatal]
  - Septic shock [Fatal]
  - Pneumonia aspiration [Fatal]
